FAERS Safety Report 8767966 (Version 2)
Quarter: 2013Q2

REPORT INFORMATION
  Report Type: Spontaneous
  Country: US (occurrence: US)
  Receive Date: 20120904
  Receipt Date: 20130513
  Transmission Date: 20140414
  Serious: Yes (Other)
  Sender: FDA-Public Use
  Company Number: US-AMGEN-USASP2012053702

PATIENT
  Age: 63 Year
  Sex: Female
  Weight: 76.19 kg

DRUGS (8)
  1. ENBREL [Suspect]
     Indication: RHEUMATOID ARTHRITIS
     Dosage: 50 MG, QWK
     Route: 058
     Dates: start: 20110816, end: 201208
  2. NEXIUM                             /01479302/ [Concomitant]
     Dosage: 40 MG, UNK
     Route: 048
  3. LEUCOVORIN CA [Concomitant]
     Dosage: 5 MG, UNK
     Route: 048
  4. ELOCON [Concomitant]
     Dosage: 0.1 %, UNK
  5. TAMOXIFEN [Concomitant]
     Dosage: 10 MG, UNK
     Route: 048
  6. FOLIC ACID [Concomitant]
     Dosage: 1 MG, UNK
     Route: 048
  7. METHOTREXATE [Concomitant]
     Dosage: 2.5 MG, UNK
     Route: 048
  8. CATAPRES                           /00171101/ [Concomitant]
     Dosage: 0.1 MG, UNK
     Route: 048

REACTIONS (2)
  - Cystitis [Not Recovered/Not Resolved]
  - Kidney infection [Unknown]
